FAERS Safety Report 9166727 (Version 2)
Quarter: 2013Q2

REPORT INFORMATION
  Report Type: Report from Study
  Country: DE (occurrence: DE)
  Receive Date: 20130315
  Receipt Date: 20130409
  Transmission Date: 20140414
  Serious: Yes (Hospitalization)
  Sender: FDA-Public Use
  Company Number: DE-ABBOTT-13P-062-1064397-00

PATIENT
  Age: 35 Year
  Sex: Female
  Weight: 55 kg

DRUGS (3)
  1. KALETRA [Suspect]
     Indication: HIV INFECTION
     Dates: start: 20110503
  2. EPIVIR [Concomitant]
     Indication: PRODUCT USED FOR UNKNOWN INDICATION
     Dates: start: 20070213
  3. VIREAD [Concomitant]
     Indication: PRODUCT USED FOR UNKNOWN INDICATION
     Dates: start: 20070213

REACTIONS (4)
  - Abortion spontaneous [Unknown]
  - Excoriation [Unknown]
  - Fatigue [Unknown]
  - Cough [Unknown]
